FAERS Safety Report 16535460 (Version 4)
Quarter: 2019Q3

REPORT INFORMATION
  Report Type: Spontaneous
  Country: US (occurrence: US)
  Receive Date: 20190705
  Receipt Date: 20190920
  Transmission Date: 20191004
  Serious: No
  Sender: FDA-Public Use
  Company Number: US-PFIZER INC-2019285942

PATIENT
  Age: 56 Year
  Sex: Female
  Weight: 81.65 kg

DRUGS (1)
  1. ELETRIPTAN HBR [Suspect]
     Active Substance: ELETRIPTAN HYDROBROMIDE
     Indication: MIGRAINE
     Dosage: 40 MG, UNK (AT ONSET OF HA)
     Route: 048

REACTIONS (1)
  - Drug ineffective [Recovered/Resolved]
